FAERS Safety Report 23714354 (Version 3)
Quarter: 2024Q2

REPORT INFORMATION
  Report Type: Spontaneous
  Country: AU (occurrence: AU)
  Receive Date: 20240405
  Receipt Date: 20240417
  Transmission Date: 20240716
  Serious: Yes (Death)
  Sender: FDA-Public Use
  Company Number: AU-JNJFOC-20240404783

PATIENT
  Age: 82 Year

DRUGS (13)
  1. IBRUTINIB [Suspect]
     Active Substance: IBRUTINIB
     Indication: Chronic lymphocytic leukaemia
     Route: 048
     Dates: start: 201812
  2. CHLORAMBUCIL [Suspect]
     Active Substance: CHLORAMBUCIL
     Indication: Chronic lymphocytic leukaemia
     Dosage: THIRD LINE TREATMENT (MID/LATE 2013)
     Route: 065
     Dates: start: 2013
  3. VENETOCLAX [Suspect]
     Active Substance: VENETOCLAX
     Indication: Chronic lymphocytic leukaemia
     Dosage: DOSAGE WAS CHANGED TO SIXTH LINE TREATMENT
     Route: 048
     Dates: start: 201812
  4. VENETOCLAX [Suspect]
     Active Substance: VENETOCLAX
     Indication: Chronic lymphocytic leukaemia
     Dosage: DOSAGE WAS CHANGED TO FOURTH LINE TREATMENT
     Route: 048
     Dates: start: 201404
  5. DEXAMETHASONE [Suspect]
     Active Substance: DEXAMETHASONE
     Indication: Chronic lymphocytic leukaemia
     Dosage: THIRD LINE TREATMENT (MID/LATE 2013)
     Route: 065
     Dates: start: 2013
  6. CYCLOPHOSPHAMIDE [Suspect]
     Active Substance: CYCLOPHOSPHAMIDE
     Indication: Chronic lymphocytic leukaemia
     Dosage: ON DEC-2011, DOSAGE WAS CHANGED TO SECOND LINE TREATMENT FCR REGIMEN  X 5 CYCLES
     Route: 065
  7. VINCRISTINE [Suspect]
     Active Substance: VINCRISTINE
     Indication: Chronic lymphocytic leukaemia
     Route: 065
  8. PREDNISOLONE [Suspect]
     Active Substance: PREDNISOLONE
     Indication: Chronic lymphocytic leukaemia
     Route: 065
  9. ZANUBRUTINIB [Suspect]
     Active Substance: ZANUBRUTINIB
     Indication: Chronic lymphocytic leukaemia
     Dosage: FIFTH LINE TREATMENT
     Route: 065
     Dates: start: 201610
  10. RITUXIMAB [Suspect]
     Active Substance: RITUXIMAB
     Indication: Chronic lymphocytic leukaemia
     Dosage: DOSAGE WAS CHANGED TO FOURTH LINE TREATMENT
     Route: 065
     Dates: start: 201404
  11. RITUXIMAB [Suspect]
     Active Substance: RITUXIMAB
     Indication: Chronic lymphocytic leukaemia
     Dosage: SECOND LINE TREATMENT- FCR REGIMEN X 5 CYCLES
     Route: 065
     Dates: start: 201112
  12. DOXORUBICIN [Suspect]
     Active Substance: DOXORUBICIN
     Indication: Chronic lymphocytic leukaemia
     Route: 065
  13. FLUDARABINE [Suspect]
     Active Substance: FLUDARABINE PHOSPHATE
     Indication: Chronic lymphocytic leukaemia
     Dosage: SECOND LINE TREATMENT- FCR REGIMEN X 5 CYCLES
     Route: 065
     Dates: start: 201112

REACTIONS (4)
  - Death [Fatal]
  - Tyrosine kinase mutation [Fatal]
  - TP53 gene mutation [Fatal]
  - Richter^s syndrome [Fatal]

NARRATIVE: CASE EVENT DATE: 20191001
